FAERS Safety Report 10010780 (Version 4)
Quarter: 2014Q2

REPORT INFORMATION
  Report Type: Spontaneous
  Country: IT (occurrence: IT)
  Receive Date: 20140314
  Receipt Date: 20140409
  Transmission Date: 20141212
  Serious: Yes (Hospitalization)
  Sender: FDA-Public Use
  Company Number: IT-BAYER-2014-035932

PATIENT
  Age: 71 Year
  Sex: Female

DRUGS (6)
  1. STIVARGA [Suspect]
     Indication: GASTROINTESTINAL STROMAL TUMOUR
     Dosage: DAILY DOSE 160 MG
     Route: 048
     Dates: start: 20130301, end: 20140304
  2. LANSOPRAZOLE [Concomitant]
     Dosage: DAILY DOSE 30 MG
     Route: 048
  3. MAG 2 [Concomitant]
     Dosage: DAILY DOSE 1.5 G
     Route: 048
  4. CONGESCOR [Concomitant]
     Indication: HYPERTENSION
     Dosage: DAILY DOSE 1.25 MG
     Route: 048
  5. HYDROCHLOROTHIAZIDE [Concomitant]
     Indication: HYPERTENSION
     Dosage: DAILY DOSE 1 DF
     Route: 048
  6. CARDURA [Concomitant]
     Indication: HYPERTENSION
     Dosage: DAILY DOSE 4 MG
     Route: 048

REACTIONS (1)
  - Electrocardiogram repolarisation abnormality [Recovered/Resolved]
